FAERS Safety Report 4996022-2 (Version None)
Quarter: 2006Q2

REPORT INFORMATION
  Report Type: 
  Country: None (occurrence: None)
  Receive Date: 20060508
  Receipt Date: 20060126
  Transmission Date: 20061013
  Serious: Yes (Hospitalization)
  Sender: FDA-Public Use
  Company Number: US-MERCK-0601USA03573

PATIENT
  Age: 77 Year
  Sex: Female
  Weight: 61 kg

DRUGS (23)
  1. VIOXX [Suspect]
     Indication: RHEUMATOID ARTHRITIS
     Route: 048
     Dates: start: 20010417, end: 20040912
  2. VIOXX [Suspect]
     Indication: OSTEOARTHRITIS
     Route: 048
     Dates: start: 20010417, end: 20040912
  3. CIPROFLOXACIN [Concomitant]
     Indication: BACTERIAL INFECTION
     Route: 065
  4. HYDROCODONE BITARTRATE [Concomitant]
     Indication: PAIN
     Route: 065
     Dates: start: 20010101, end: 20040101
  5. IBUPROFEN [Concomitant]
     Indication: PAIN
     Route: 065
     Dates: start: 20010101, end: 20030101
  6. ALPRAZOLAM [Concomitant]
     Indication: ANXIETY
     Route: 065
  7. ALTACE [Concomitant]
     Indication: CARDIAC DISORDER
     Route: 065
     Dates: start: 20010101
  8. ALTACE [Concomitant]
     Indication: HYPERTENSION
     Route: 065
     Dates: start: 20010101
  9. ALBUTEROL [Concomitant]
     Indication: ASTHMA
     Route: 065
  10. ADVAIR DISKUS 100/50 [Concomitant]
     Indication: ASTHMA
     Route: 065
  11. IMIPRAMINE PAMOATE [Concomitant]
     Indication: DEPRESSION
     Route: 065
  12. ACETAMINOPHEN AND PROPOXYPHENE NAPSYLATE [Concomitant]
     Indication: PAIN
     Route: 065
     Dates: start: 20010101
  13. PREMARIN [Concomitant]
     Indication: HORMONE LEVEL ABNORMAL
     Route: 065
     Dates: start: 20020701, end: 20020801
  14. PHENAZOPYRIDINE HYDROCHLORIDE [Concomitant]
     Indication: URINARY TRACT INFECTION
     Route: 065
  15. CEPHALEXIN [Concomitant]
     Indication: BACTERIAL INFECTION
     Route: 065
  16. TYLENOL (CAPLET) [Concomitant]
     Indication: PAIN
     Route: 065
     Dates: start: 20000101
  17. PREMPRO [Concomitant]
     Indication: HORMONE LEVEL ABNORMAL
     Route: 065
     Dates: start: 19990101, end: 20020101
  18. SMZ-TMP [Concomitant]
     Indication: INFECTION
     Route: 065
  19. MEPERIDINE HYDROCHLORIDE AND PROMETHAZINE HYDROCHLORIDE [Concomitant]
     Indication: HYPERSENSITIVITY
     Route: 065
  20. BIAXIN XL [Concomitant]
     Indication: BACTERIAL INFECTION
     Route: 065
  21. ERY-TAB [Concomitant]
     Indication: BACTERIAL INFECTION
     Route: 065
  22. HYDROXYZINE PAMOATE [Concomitant]
     Indication: HYPERSENSITIVITY
     Route: 065
  23. ORPHENADRINE [Concomitant]
     Indication: PAIN
     Route: 065

REACTIONS (5)
  - CARDIAC VALVE DISEASE [None]
  - CHEST PAIN [None]
  - DYSPEPSIA [None]
  - HYPERTENSION [None]
  - MYOCARDIAL INFARCTION [None]
